FAERS Safety Report 24124197 (Version 4)
Quarter: 2024Q4

REPORT INFORMATION
  Report Type: Spontaneous
  Country: US (occurrence: US)
  Receive Date: 20240723
  Receipt Date: 20241017
  Transmission Date: 20250114
  Serious: Yes (Other)
  Sender: BRISTOL-MYERS SQUIBB COMPANY
  Company Number: US-EXELIXIS-CABO-24079434

PATIENT
  Age: 38 Year
  Sex: Male

DRUGS (5)
  1. OPDIVO [Suspect]
     Active Substance: NIVOLUMAB
     Indication: Renal cell carcinoma
     Dates: start: 20240610
  2. CABOMETYX [Suspect]
     Active Substance: CABOZANTINIB S-MALATE
     Indication: Renal cell carcinoma
     Dates: start: 20240610
  3. CABOMETYX [Suspect]
     Active Substance: CABOZANTINIB S-MALATE
  4. CABOMETYX [Suspect]
     Active Substance: CABOZANTINIB S-MALATE
  5. MOTRIN [Concomitant]
     Active Substance: IBUPROFEN
     Indication: Product used for unknown indication

REACTIONS (11)
  - Blister [Recovered/Resolved]
  - Haemoptysis [Not Recovered/Not Resolved]
  - Taste disorder [Recovered/Resolved]
  - Dizziness [Recovering/Resolving]
  - Fatigue [Unknown]
  - Diarrhoea [Recovered/Resolved]
  - Asthenia [Not Recovered/Not Resolved]
  - Memory impairment [Unknown]
  - Hepatitis [Unknown]
  - Pain in extremity [Recovering/Resolving]
  - Arthralgia [Recovered/Resolved]

NARRATIVE: CASE EVENT DATE: 20240601
